FAERS Safety Report 7235279-4 (Version None)
Quarter: 2011Q1

REPORT INFORMATION
  Report Type: 
  Country: None (occurrence: None)
  Receive Date: 20110120
  Receipt Date: 20110112
  Transmission Date: 20110831
  Serious: Yes (Other)
  Sender: FDA-Public Use
  Company Number: FR-JNJFOC-20110103161

PATIENT
  Age: 73 Year
  Sex: Male

DRUGS (2)
  1. REMINYL [Suspect]
     Indication: PRODUCT USED FOR UNKNOWN INDICATION
     Route: 048
  2. REQUIP [Suspect]
     Indication: PARKINSON'S DISEASE
     Route: 048

REACTIONS (3)
  - NO ADVERSE EVENT [None]
  - DRUG DISPENSING ERROR [None]
  - DRUG ADMINISTRATION ERROR [None]
